FAERS Safety Report 21164786 (Version 5)
Quarter: 2022Q4

REPORT INFORMATION
  Report Type: Spontaneous
  Country: CA (occurrence: CA)
  Receive Date: 20220803
  Receipt Date: 20221103
  Transmission Date: 20230113
  Serious: Yes (Other)
  Sender: FDA-Public Use
  Company Number: CA-PFIZER INC-202201021569

PATIENT
  Age: 63 Year
  Sex: Female

DRUGS (9)
  1. ABRILADA [Suspect]
     Active Substance: ADALIMUMAB-AFZB
     Indication: Crohn^s disease
     Dosage: 40MG EVERY 2 WEEKS,PRE-FILLED SYRINGE
     Route: 058
     Dates: start: 20220428
  2. ABRILADA [Suspect]
     Active Substance: ADALIMUMAB-AFZB
     Dosage: 40MG EVERY 2 WEEKS,PRE-FILLED SYRINGE- DISCONTINUED
     Route: 058
     Dates: start: 20220428, end: 20220910
  3. ABRILADA [Suspect]
     Active Substance: ADALIMUMAB-AFZB
     Dosage: 40MG EVERY 2 WEEKS,PRE-FILLED SYRINGE
     Route: 058
     Dates: start: 20220707
  4. ABRILADA [Suspect]
     Active Substance: ADALIMUMAB-AFZB
     Dosage: 40MG EVERY 2 WEEKS,PRE-FILLED SYRINGE
     Route: 058
     Dates: start: 202207
  5. ABRILADA [Suspect]
     Active Substance: ADALIMUMAB-AFZB
     Dosage: 40MG EVERY 2 WEEKS,PRE-FILLED SYRINGE
     Route: 058
     Dates: start: 20220730
  6. ABRILADA [Suspect]
     Active Substance: ADALIMUMAB-AFZB
     Dosage: 40 MG , EVERY 2 WEEKS, PRE-FILLED SYRINGE
     Route: 058
     Dates: start: 20220910, end: 20220910
  7. IRON [Concomitant]
     Active Substance: IRON
     Dosage: UNK PATIENT RECEIVED 6 IRON INFUSIONS
  8. IRON [Concomitant]
     Active Substance: IRON
     Dosage: 1 DF
  9. VENOFER [Concomitant]
     Active Substance: IRON SUCROSE
     Dosage: UNK

REACTIONS (13)
  - Drug ineffective [Unknown]
  - Vomiting [Not Recovered/Not Resolved]
  - Nausea [Unknown]
  - Blood urine present [Not Recovered/Not Resolved]
  - Decreased appetite [Recovering/Resolving]
  - Weight decreased [Not Recovered/Not Resolved]
  - Condition aggravated [Recovered/Resolved]
  - Asthenia [Unknown]
  - Chromaturia [Not Recovered/Not Resolved]
  - Headache [Unknown]
  - Hypotension [Unknown]
  - Abdominal pain [Unknown]
  - Abdominal distension [Unknown]

NARRATIVE: CASE EVENT DATE: 20220101
